FAERS Safety Report 5699712-1 (Version None)
Quarter: 2008Q2

REPORT INFORMATION
  Report Type: 
  Country: None (occurrence: None)
  Receive Date: 20080410
  Receipt Date: 20080403
  Transmission Date: 20081010
  Serious: Yes (Life-Threatening, Hospitalization, Other)
  Sender: FDA-Public Use
  Company Number: PHRM2008FR01008

PATIENT
  Age: 64 Year
  Sex: Male
  Weight: 92 kg

DRUGS (5)
  1. TEGRETOL [Suspect]
     Dosage: 300 MG, BID
     Route: 048
  2. NEXEN [Suspect]
     Indication: OSTEOARTHRITIS
     Dosage: 1 DF, BID/1 BOX
     Route: 048
  3. NEXEN [Suspect]
     Dosage: 2 DF, QD
     Route: 048
     Dates: start: 20070213
  4. NEXEN [Suspect]
     Dosage: 48 HOURS
  5. COZAAR [Concomitant]
     Indication: HYPERTENSION
     Route: 048
     Dates: start: 19980101

REACTIONS (7)
  - BLOOD POTASSIUM DECREASED [None]
  - BRADYCARDIA [None]
  - CHEST DISCOMFORT [None]
  - CORONARY ARTERY INSUFFICIENCY [None]
  - HYPERHIDROSIS [None]
  - HYPERTENSION [None]
  - MALAISE [None]
